FAERS Safety Report 17976928 (Version 1)
Quarter: 2020Q3

REPORT INFORMATION
  Report Type: Spontaneous
  Country: US (occurrence: US)
  Receive Date: 20200702
  Receipt Date: 20200702
  Transmission Date: 20201103
  Serious: Yes (Hospitalization)
  Sender: FDA-Public Use
  Company Number: US-ASTRAZENECA-2020SE82277

PATIENT
  Age: 57 Year
  Sex: Female

DRUGS (2)
  1. VELTASSA [Concomitant]
     Active Substance: PATIROMER
  2. LOKELMA [Suspect]
     Active Substance: SODIUM ZIRCONIUM CYCLOSILICATE
     Indication: HYPERKALAEMIA
     Dosage: 10 G, 3 TIMES A DAY FOR 7 DAYS
     Route: 048

REACTIONS (2)
  - Osteomyelitis [Unknown]
  - Drug ineffective [Unknown]

NARRATIVE: CASE EVENT DATE: 2020
